FAERS Safety Report 5119749-0 (Version None)
Quarter: 2006Q4

REPORT INFORMATION
  Report Type: 
  Country: None (occurrence: None)
  Receive Date: 20061003
  Receipt Date: 20060926
  Transmission Date: 20070319
  Serious: Yes (Life-Threatening)
  Sender: FDA-Public Use
  Company Number: GB-GLAXOSMITHKLINE-B0440132A

PATIENT
  Age: 31 Year
  Sex: Female

DRUGS (4)
  1. ACETAMINOPHEN [Suspect]
     Indication: DRUG USE FOR UNKNOWN INDICATION
     Route: 048
     Dates: start: 20060806, end: 20060807
  2. CETIRIZINE HCL [Concomitant]
     Indication: HYPERSENSITIVITY
     Route: 048
     Dates: start: 20060704, end: 20060706
  3. ACETAMINOPHEN [Concomitant]
     Dosage: 1UNIT FOUR TIMES PER DAY
     Route: 048
     Dates: start: 20060704, end: 20060704
  4. QUININE SULFATE [Concomitant]
     Indication: PARAESTHESIA
     Route: 048
     Dates: end: 20060704

REACTIONS (1)
  - STEVENS-JOHNSON SYNDROME [None]
